FAERS Safety Report 7163488-1 (Version None)
Quarter: 2010Q4

REPORT INFORMATION
  Report Type: 
  Country: None (occurrence: None)
  Receive Date: 20101215
  Receipt Date: 20100427
  Transmission Date: 20110411
  Serious: Yes (Other)
  Sender: FDA-Public Use
  Company Number: FI-PFIZER INC-2010052132

PATIENT
  Age: 45 Year
  Sex: Male

DRUGS (4)
  1. LYRICA [Suspect]
     Indication: WOUND COMPLICATION
     Dosage: 75MG + 150MG DAILY
     Route: 048
  2. LYRICA [Suspect]
     Indication: PROCTALGIA
  3. TRAMAL [Concomitant]
     Indication: WOUND COMPLICATION
  4. TRAMAL [Concomitant]
     Indication: PROCTALGIA

REACTIONS (2)
  - ALANINE AMINOTRANSFERASE INCREASED [None]
  - ASPARTATE AMINOTRANSFERASE INCREASED [None]
